FAERS Safety Report 9283698 (Version 2)
Quarter: 2013Q3

REPORT INFORMATION
  Report Type: Spontaneous
  Country: US (occurrence: US)
  Receive Date: 20130510
  Receipt Date: 20130702
  Transmission Date: 20140515
  Serious: Yes (Hospitalization)
  Sender: FDA-Public Use
  Company Number: US-GLAXOSMITHKLINE-A1022983A

PATIENT
  Age: 56 Year
  Sex: Male

DRUGS (15)
  1. COREG [Suspect]
     Indication: CARDIAC DISORDER
     Dosage: 12.5MG TWICE PER DAY
     Dates: start: 2003
  2. EFFEXOR XR [Concomitant]
  3. WARFARIN [Concomitant]
  4. SPIRONOLACTONE [Concomitant]
  5. ACCUPRIL [Concomitant]
  6. DETROL LA [Concomitant]
  7. GLUCOTROL XL [Concomitant]
  8. LIPITOR [Concomitant]
  9. THEOPHYLLINE [Concomitant]
  10. FUROSEMIDE [Concomitant]
  11. KLOR-CON [Concomitant]
  12. NEXIUM [Concomitant]
  13. METFORMIN HCL [Concomitant]
  14. ASPIRIN [Concomitant]
  15. VITAMIN [Concomitant]

REACTIONS (1)
  - Pneumonia [Recovered/Resolved]
